FAERS Safety Report 17184249 (Version 1)
Quarter: 2019Q4

REPORT INFORMATION
  Report Type: Spontaneous
  Country: US (occurrence: US)
  Receive Date: 20191219
  Receipt Date: 20191219
  Transmission Date: 20200122
  Serious: Yes (Hospitalization)
  Sender: FDA-Public Use
  Company Number: None

PATIENT
  Age: 5 Year
  Sex: Female

DRUGS (3)
  1. OMNITROPE [Suspect]
     Active Substance: SOMATROPIN
     Indication: HYPOGLYCAEMIA
     Route: 058
     Dates: start: 20190528
  2. OMNITROPE [Suspect]
     Active Substance: SOMATROPIN
     Indication: HYPOPITUITARISM
     Route: 058
     Dates: start: 20190528
  3. OMNITROPE [Suspect]
     Active Substance: SOMATROPIN
     Indication: ACUTE PULMONARY OEDEMA
     Route: 058
     Dates: start: 20190528

REACTIONS (2)
  - Haemoglobin decreased [None]
  - Condition aggravated [None]
